FAERS Safety Report 12248922 (Version 2)
Quarter: 2016Q2

REPORT INFORMATION
  Report Type: Spontaneous
  Country: US (occurrence: US)
  Receive Date: 20160408
  Receipt Date: 20160523
  Transmission Date: 20160815
  Serious: Yes (Hospitalization, Other)
  Sender: FDA-Public Use
  Company Number: US-ELI_LILLY_AND_COMPANY-US201603011331

PATIENT
  Age: 82 Year
  Sex: Female
  Weight: 102.5 kg

DRUGS (4)
  1. LEVEMIR [Concomitant]
     Active Substance: INSULIN DETEMIR
     Indication: PRODUCT USED FOR UNKNOWN INDICATION
     Dosage: UNK, UNKNOWN
     Route: 065
  2. HUMALOG [Suspect]
     Active Substance: INSULIN LISPRO
     Indication: TYPE 2 DIABETES MELLITUS
     Dosage: UNK, ONCE BEFORE EACH MEAL
     Route: 065
     Dates: start: 2002
  3. HUMALOG [Suspect]
     Active Substance: INSULIN LISPRO
     Dosage: UNK, ONCE BEFORE EACH MEAL
     Route: 065
     Dates: start: 2002
  4. HUMALOG [Suspect]
     Active Substance: INSULIN LISPRO
     Dosage: UNK, ONCE BEFORE EACH MEAL
     Route: 065
     Dates: start: 2002

REACTIONS (7)
  - Neoplasm malignant [Unknown]
  - Fall [Unknown]
  - Stenosis [Unknown]
  - Acoustic neuroma [Unknown]
  - Intervertebral disc degeneration [Unknown]
  - Carcinoid tumour [Unknown]
  - CSF volume increased [Unknown]

NARRATIVE: CASE EVENT DATE: 201602
